FAERS Safety Report 23732214 (Version 1)
Quarter: 2024Q2

REPORT INFORMATION
  Report Type: Spontaneous
  Country: US (occurrence: None)
  Receive Date: 20240410
  Receipt Date: 20240410
  Transmission Date: 20240716
  Serious: Yes (Death)
  Sender: FDA-Public Use
  Company Number: None

PATIENT
  Age: 70 Year
  Sex: Female

DRUGS (6)
  1. OZEMPIC [Suspect]
     Active Substance: SEMAGLUTIDE
     Indication: Diabetes mellitus
     Dates: start: 20200831, end: 20211001
  2. propanolol [Concomitant]
  3. SYNTHROID [Concomitant]
  4. zofran [Concomitant]
  5. SEROQUEL [Concomitant]
  6. muscle relaxors [Concomitant]

REACTIONS (9)
  - General physical health deterioration [None]
  - Weight decreased [None]
  - Muscle atrophy [None]
  - Asthenia [None]
  - Fall [None]
  - Loss of personal independence in daily activities [None]
  - Hip fracture [None]
  - Diabetic complication [None]
  - Quality of life decreased [None]

NARRATIVE: CASE EVENT DATE: 20240321
